FAERS Safety Report 10066088 (Version 1)
Quarter: 2014Q1

REPORT INFORMATION
  Report Type: Spontaneous
  Country: US (occurrence: None)
  Receive Date: 20140328
  Receipt Date: 20140328
  Transmission Date: 20141002
  Serious: No
  Sender: FDA-Public Use
  Company Number: 1000051917

PATIENT
  Age: 81 Year
  Sex: Female

DRUGS (3)
  1. LINZESS (LINACLOTIDE) (290 MICROGRAM, CAPSULES) [Suspect]
     Indication: CONSTIPATION
     Route: 048
     Dates: start: 201304
  2. MIRALAX (POLYETHYLENE GLYCOL) [Concomitant]
  3. ATACAND (CANDESARTAN CILEXETIL) [Concomitant]

REACTIONS (1)
  - Abdominal pain [None]
